FAERS Safety Report 7130790-9 (Version None)
Quarter: 2010Q4

REPORT INFORMATION
  Report Type: 
  Country: None (occurrence: None)
  Receive Date: 20101201
  Receipt Date: 20101125
  Transmission Date: 20110411
  Serious: Yes (Hospitalization)
  Sender: FDA-Public Use
  Company Number: JP-ROCHE-742067

PATIENT
  Sex: Female

DRUGS (31)
  1. TOCILIZUMAB [Suspect]
     Indication: RHEUMATOID ARTHRITIS
     Route: 041
     Dates: start: 20080812, end: 20080812
  2. TOCILIZUMAB [Suspect]
     Route: 041
     Dates: start: 20080910, end: 20080910
  3. TOCILIZUMAB [Suspect]
     Route: 041
     Dates: start: 20081008, end: 20081008
  4. TOCILIZUMAB [Suspect]
     Route: 041
     Dates: start: 20081106, end: 20081106
  5. TOCILIZUMAB [Suspect]
     Route: 041
     Dates: start: 20081203, end: 20081203
  6. TOCILIZUMAB [Suspect]
     Route: 041
     Dates: start: 20081231, end: 20081231
  7. TOCILIZUMAB [Suspect]
     Route: 041
     Dates: start: 20090128, end: 20090128
  8. TOCILIZUMAB [Suspect]
     Route: 041
     Dates: start: 20090225, end: 20090225
  9. TOCILIZUMAB [Suspect]
     Route: 041
     Dates: start: 20090325, end: 20090325
  10. TOCILIZUMAB [Suspect]
     Route: 041
     Dates: start: 20090422, end: 20090422
  11. TOCILIZUMAB [Suspect]
     Route: 041
     Dates: start: 20090520, end: 20090520
  12. TOCILIZUMAB [Suspect]
     Route: 041
     Dates: start: 20090616, end: 20090616
  13. TOCILIZUMAB [Suspect]
     Route: 041
     Dates: start: 20090714, end: 20090714
  14. TOCILIZUMAB [Suspect]
     Route: 041
     Dates: start: 20090811, end: 20090811
  15. TOCILIZUMAB [Suspect]
     Route: 041
     Dates: start: 20090908, end: 20090908
  16. TOCILIZUMAB [Suspect]
     Route: 041
     Dates: start: 20091006, end: 20091006
  17. TOCILIZUMAB [Suspect]
     Route: 041
     Dates: start: 20091102, end: 20091102
  18. TOCILIZUMAB [Suspect]
     Route: 041
     Dates: start: 20091130, end: 20091130
  19. TOCILIZUMAB [Suspect]
     Route: 041
     Dates: start: 20091228, end: 20091228
  20. TOCILIZUMAB [Suspect]
     Route: 041
     Dates: start: 20100125, end: 20100125
  21. TOCILIZUMAB [Suspect]
     Route: 041
     Dates: start: 20100222, end: 20100222
  22. TOCILIZUMAB [Suspect]
     Route: 041
     Dates: start: 20100323, end: 20100323
  23. TOCILIZUMAB [Suspect]
     Route: 041
     Dates: start: 20100420, end: 20100420
  24. TOCILIZUMAB [Suspect]
     Route: 041
     Dates: start: 20100518, end: 20100518
  25. TOCILIZUMAB [Suspect]
     Route: 041
     Dates: start: 20100615, end: 20100615
  26. TOCILIZUMAB [Suspect]
     Route: 041
     Dates: start: 20100713, end: 20100713
  27. TOCILIZUMAB [Suspect]
     Route: 041
     Dates: start: 20100810, end: 20100810
  28. MEDROL [Concomitant]
     Dosage: FORM: PERORAL AGENT
     Route: 048
     Dates: end: 20080811
  29. MEDROL [Concomitant]
     Dosage: FORM: PERORAL AGENT
     Route: 048
     Dates: start: 20080812, end: 20081007
  30. MEDROL [Concomitant]
     Route: 048
     Dates: start: 20081008, end: 20081202
  31. CELECOXIB [Concomitant]
     Dosage: FORM: PERORAL AGENT
     Route: 048
     Dates: end: 20080811

REACTIONS (1)
  - FRACTURE [None]
